FAERS Safety Report 6454030-9 (Version None)
Quarter: 2009Q4

REPORT INFORMATION
  Report Type: 
  Country: None (occurrence: None)
  Receive Date: 20091124
  Receipt Date: 20091123
  Transmission Date: 20100525
  Serious: Yes (Other)
  Sender: FDA-Public Use
  Company Number: A0817453A

PATIENT
  Sex: Female

DRUGS (9)
  1. PAXIL [Suspect]
     Indication: DEPRESSION
     Dates: start: 20020101, end: 20090901
  2. PAROXETINE HYDROCHLORIDE [Suspect]
     Indication: DEPRESSION
     Dosage: 40MG PER DAY
     Route: 048
     Dates: start: 20030101, end: 20090701
  3. METFORMIN HCL [Concomitant]
  4. LEVOTHYROXINE SODIUM [Concomitant]
  5. FEXOFENADINE [Concomitant]
  6. OMEPRAZOLE [Concomitant]
  7. LOVASTATIN [Concomitant]
  8. AMLODIPINE [Concomitant]
  9. FOSAMAX [Concomitant]

REACTIONS (8)
  - AGGRESSION [None]
  - CRYING [None]
  - DEPRESSED MOOD [None]
  - DIZZINESS [None]
  - DRUG INEFFECTIVE [None]
  - FATIGUE [None]
  - FEELING ABNORMAL [None]
  - FLAT AFFECT [None]
